FAERS Safety Report 4404410-8 (Version None)
Quarter: 2004Q3

REPORT INFORMATION
  Report Type: 
  Country: None (occurrence: None)
  Receive Date: 20040720
  Receipt Date: 20040706
  Transmission Date: 20050211
  Serious: Yes (Hospitalization)
  Sender: FDA-Public Use
  Company Number: 173456

PATIENT
  Age: 40 Year
  Sex: Female
  Weight: 86.1834 kg

DRUGS (2)
  1. AVONEX [Suspect]
     Indication: MULTIPLE SCLEROSIS
     Dosage: 30 MCG QW IM
     Route: 030
     Dates: start: 20020501
  2. KAPPAXIN [Concomitant]

REACTIONS (15)
  - ANXIETY [None]
  - CATHETER RELATED COMPLICATION [None]
  - CATHETER RELATED INFECTION [None]
  - CHEST PAIN [None]
  - DEPRESSION [None]
  - FATIGUE [None]
  - HYPOAESTHESIA [None]
  - INFLUENZA LIKE ILLNESS [None]
  - JUGULAR VEIN THROMBOSIS [None]
  - MULTIPLE SCLEROSIS [None]
  - OPTIC NEURITIS RETROBULBAR [None]
  - PAIN [None]
  - PARAESTHESIA [None]
  - PYREXIA [None]
  - VEIN DISORDER [None]
